FAERS Safety Report 24832699 (Version 1)
Quarter: 2025Q1

REPORT INFORMATION
  Report Type: Spontaneous
  Country: US (occurrence: US)
  Receive Date: 20250110
  Receipt Date: 20250110
  Transmission Date: 20250408
  Serious: Yes (Hospitalization, Other)
  Sender: ELI LILLY AND COMPANY
  Company Number: US-ELI_LILLY_AND_COMPANY-US202501002775

PATIENT
  Age: 44 Year
  Sex: Male
  Weight: 108.84 kg

DRUGS (18)
  1. MOUNJARO [Suspect]
     Active Substance: TIRZEPATIDE
     Indication: Type 2 diabetes mellitus
     Route: 065
     Dates: start: 202408
  2. MOUNJARO [Suspect]
     Active Substance: TIRZEPATIDE
     Indication: Type 2 diabetes mellitus
     Route: 065
     Dates: start: 202408
  3. MOUNJARO [Suspect]
     Active Substance: TIRZEPATIDE
     Indication: Type 2 diabetes mellitus
     Route: 065
     Dates: start: 202408
  4. MOUNJARO [Suspect]
     Active Substance: TIRZEPATIDE
     Indication: Type 2 diabetes mellitus
     Route: 065
     Dates: start: 202408
  5. MOUNJARO [Suspect]
     Active Substance: TIRZEPATIDE
     Route: 065
  6. MOUNJARO [Suspect]
     Active Substance: TIRZEPATIDE
     Route: 065
  7. MOUNJARO [Suspect]
     Active Substance: TIRZEPATIDE
     Route: 065
  8. MOUNJARO [Suspect]
     Active Substance: TIRZEPATIDE
     Route: 065
  9. MOUNJARO [Suspect]
     Active Substance: TIRZEPATIDE
     Route: 065
  10. MOUNJARO [Suspect]
     Active Substance: TIRZEPATIDE
     Route: 065
  11. MOUNJARO [Suspect]
     Active Substance: TIRZEPATIDE
     Route: 065
  12. MOUNJARO [Suspect]
     Active Substance: TIRZEPATIDE
     Route: 065
  13. MOUNJARO [Suspect]
     Active Substance: TIRZEPATIDE
     Route: 058
     Dates: start: 20241124, end: 20241222
  14. MOUNJARO [Suspect]
     Active Substance: TIRZEPATIDE
     Route: 058
     Dates: start: 20241124, end: 20241222
  15. MOUNJARO [Suspect]
     Active Substance: TIRZEPATIDE
     Route: 058
     Dates: start: 20241124, end: 20241222
  16. MOUNJARO [Suspect]
     Active Substance: TIRZEPATIDE
     Route: 058
     Dates: start: 20241124, end: 20241222
  17. METFORMIN HYDROCHLORIDE [Concomitant]
     Active Substance: METFORMIN HYDROCHLORIDE
     Indication: Type 2 diabetes mellitus
     Dosage: 500 MG, DAILY
     Route: 065
  18. COBAMAMIDE [Concomitant]
     Active Substance: COBAMAMIDE
     Indication: Product used for unknown indication
     Route: 065

REACTIONS (21)
  - Diarrhoea [Not Recovered/Not Resolved]
  - Vomiting [Not Recovered/Not Resolved]
  - Dehydration [Unknown]
  - Colitis [Unknown]
  - Dizziness [Unknown]
  - Body temperature decreased [Unknown]
  - Hypotension [Unknown]
  - Hyperhidrosis [Unknown]
  - Heart rate increased [Unknown]
  - Headache [Recovered/Resolved]
  - Pain [Recovered/Resolved]
  - Thrombosis [Unknown]
  - Gastrointestinal inflammation [Unknown]
  - Weight decreased [Unknown]
  - Lethargy [Unknown]
  - Nausea [Unknown]
  - Abdominal pain [Recovered/Resolved]
  - Malaise [Not Recovered/Not Resolved]
  - Abdominal discomfort [Unknown]
  - Abdominal pain upper [Unknown]
  - Asthenia [Unknown]

NARRATIVE: CASE EVENT DATE: 20241203
